FAERS Safety Report 26213127 (Version 1)
Quarter: 2025Q4

REPORT INFORMATION
  Report Type: Report from Study
  Country: GB (occurrence: GB)
  Receive Date: 20251230
  Receipt Date: 20251230
  Transmission Date: 20260118
  Serious: Yes (Hospitalization, Other)
  Sender: SANOFI AVENTIS
  Company Number: GB-SA-2025SA228247

PATIENT
  Age: 57 Year
  Sex: Male

DRUGS (1)
  1. DUPILUMAB [Suspect]
     Active Substance: DUPILUMAB
     Indication: Dermatitis atopic
     Dosage: 300 MG
     Route: 058
     Dates: start: 202501

REACTIONS (3)
  - Atrial fibrillation [Unknown]
  - Left ventricular dysfunction [Unknown]
  - Viral infection [Unknown]

NARRATIVE: CASE EVENT DATE: 20250101
